FAERS Safety Report 4611469-1 (Version None)
Quarter: 2005Q2

REPORT INFORMATION
  Report Type: 
  Country: None (occurrence: None)
  Receive Date: 20050311
  Receipt Date: 20041112
  Transmission Date: 20051028
  Serious: No
  Sender: FDA-Public Use
  Company Number: 2004-BP-11823BP

PATIENT
  Sex: Female

DRUGS (3)
  1. SPIRIVA [Suspect]
     Indication: CHRONIC OBSTRUCTIVE PULMONARY DISEASE
     Dosage: 18 MCG (18 MCG), IH
     Route: 055
     Dates: start: 20040824
  2. SPIRIVA [Suspect]
     Dosage: 18 MCG  (18 MCG), IH
     Route: 055
     Dates: start: 20040824, end: 20041027
  3. SEREVENT [Concomitant]

REACTIONS (4)
  - CONSTIPATION [None]
  - DRY MOUTH [None]
  - DYSPNOEA EXACERBATED [None]
  - HEADACHE [None]
